FAERS Safety Report 17213300 (Version 1)
Quarter: 2019Q4

REPORT INFORMATION
  Report Type: Spontaneous
  Country: GB (occurrence: GB)
  Receive Date: 20191230
  Receipt Date: 20191230
  Transmission Date: 20200122
  Serious: Yes (Disabling, Other)
  Sender: FDA-Public Use
  Company Number: GB-TEVA-2019-GB-1158670

PATIENT
  Age: 73 Year
  Sex: Male
  Weight: 74.38 kg

DRUGS (2)
  1. BISOPROLOL FUMARATE. [Suspect]
     Active Substance: BISOPROLOL FUMARATE
     Indication: ARRHYTHMIA PROPHYLAXIS
     Dosage: 1.25 MG
     Route: 048
     Dates: start: 201201
  2. APIXABAN [Concomitant]
     Active Substance: APIXABAN

REACTIONS (4)
  - Gait disturbance [Not Recovered/Not Resolved]
  - Chillblains [Not Recovered/Not Resolved]
  - Skin discolouration [Not Recovered/Not Resolved]
  - Pain in extremity [Not Recovered/Not Resolved]

NARRATIVE: CASE EVENT DATE: 201810
